FAERS Safety Report 8874531 (Version 2)
Quarter: 2012Q4

REPORT INFORMATION
  Report Type: 
  Country: US (occurrence: US)
  Receive Date: 20121023
  Receipt Date: 20121120
  Transmission Date: 20130627
  Serious: Yes (Other)
  Sender: FDA-Public Use
  Company Number: GXBR2012US002160

PATIENT
  Sex: Male

DRUGS (5)
  1. AMIODARONE HYDROCHLORIDE [Suspect]
     Indication: ATRIAL FIBRILLATION
     Dosage: 200 mg, QD
     Route: 048
     Dates: start: 20121012
  2. JANTOVEN [Suspect]
     Indication: THROMBOSIS PROPHYLAXIS
     Dosage: 6 mg, QD
     Dates: end: 20121011
  3. JANTOVEN [Suspect]
     Dosage: 3 mg, QD
     Dates: start: 20121012, end: 20121015
  4. JANTOVEN [Suspect]
     Dosage: 4 mg, QD
     Dates: start: 20121016, end: 20121018
  5. JANTOVEN [Suspect]
     Dosage: 6 mg, QD
     Dates: start: 20121019

REACTIONS (3)
  - Transient ischaemic attack [Unknown]
  - Blindness transient [Recovered/Resolved]
  - Blood pressure increased [Recovered/Resolved]
